FAERS Safety Report 23315802 (Version 1)
Quarter: 2023Q4

REPORT INFORMATION
  Report Type: Spontaneous
  Country: CN (occurrence: CN)
  Receive Date: 20231219
  Receipt Date: 20231219
  Transmission Date: 20240109
  Serious: Yes (Hospitalization, Disabling)
  Sender: FDA-Public Use
  Company Number: CN-BAYER-2023A177284

PATIENT
  Age: 55 Year
  Sex: Male
  Weight: 70 kg

DRUGS (3)
  1. STIVARGA [Suspect]
     Active Substance: REGORAFENIB
     Indication: Hepatocellular carcinoma
     Dosage: 160 MG, QD
     Route: 048
     Dates: start: 20231027, end: 20231127
  2. WU LING [BUPLEURUM SPP. ROOT;GANODERMA SPP. SPOROCARP;SALVIA MILTI [Concomitant]
     Dosage: 1.75 G, TID
     Route: 048
     Dates: start: 20231027, end: 20231027
  3. ENTECAVIR [Concomitant]
     Active Substance: ENTECAVIR
     Dosage: 0.5 G, QD
     Route: 048
     Dates: start: 20231027, end: 20231027

REACTIONS (6)
  - Liver injury [Recovering/Resolving]
  - Yellow skin [Recovering/Resolving]
  - Headache [None]
  - Blood pressure increased [Recovered/Resolved]
  - Ocular icterus [Recovering/Resolving]
  - Platelet count decreased [Recovered/Resolved]

NARRATIVE: CASE EVENT DATE: 20230101
